FAERS Safety Report 25277473 (Version 2)
Quarter: 2025Q2

REPORT INFORMATION
  Report Type: Spontaneous
  Country: DE (occurrence: DE)
  Receive Date: 20250507
  Receipt Date: 20250508
  Transmission Date: 20250716
  Serious: Yes (Other)
  Sender: NOVARTIS
  Company Number: DE-002147023-NVSC2025DE072516

PATIENT
  Sex: Female

DRUGS (1)
  1. KYMRIAH [Suspect]
     Active Substance: TISAGENLECLEUCEL
     Indication: Acute lymphocytic leukaemia
     Route: 042
     Dates: start: 202101, end: 202101

REACTIONS (4)
  - Nervous system disorder [Unknown]
  - Minimal residual disease [Unknown]
  - Bone marrow disorder [Unknown]
  - Leukaemia recurrent [Unknown]

NARRATIVE: CASE EVENT DATE: 20250430
